FAERS Safety Report 23287410 (Version 1)
Quarter: 2023Q4

REPORT INFORMATION
  Report Type: Other
  Country: IT (occurrence: IT)
  Receive Date: 20231212
  Receipt Date: 20231212
  Transmission Date: 20240109
  Serious: Yes (Hospitalization)
  Sender: FDA-Public Use
  Company Number: IT-MACLEODS PHARMACEUTICALS US LTD-MAC2023044684

PATIENT

DRUGS (13)
  1. VALSARTAN [Suspect]
     Active Substance: VALSARTAN
     Indication: Hypertension
     Dosage: 40 MILLIGRAM, BID
     Route: 048
     Dates: start: 20231117, end: 20231119
  2. Luvion [Concomitant]
     Indication: Product used for unknown indication
     Dosage: 100 MILLIGRAM, QD,LUVIOM 100MG, 1CP HOURS 8
     Route: 048
  3. ATORVASTATIN [Concomitant]
     Active Substance: ATORVASTATIN
     Indication: Product used for unknown indication
     Dosage: 40 MILLIGRAM, QD, ATORVASTATINA 40MG, 1CP AT 8 PM
     Route: 048
  4. VERICIGUAT [Concomitant]
     Active Substance: VERICIGUAT
     Indication: Product used for unknown indication
     Dosage: 2.5 MILLIGRAM, QD,VERICIGUAT 1.25MG, 1CP HOURS 8
     Route: 048
  5. AMLODIPINE [Concomitant]
     Active Substance: AMLODIPINE BESYLATE
     Indication: Product used for unknown indication
     Dosage: 10 MILLIGRAM, QD, AMLODIPINE 10MG, 1CP AT 8 PM
     Route: 048
  6. CARVEDILOL [Concomitant]
     Active Substance: CARVEDILOL
     Indication: Product used for unknown indication
     Dosage: 25 MILLIGRAM, BID, DILATREND 25MG BID
     Route: 048
  7. CARDURA [Concomitant]
     Active Substance: DOXAZOSIN MESYLATE
     Indication: Product used for unknown indication
     Dosage: 8 MILLIGRAM, BID, CARDURA 8MG BID, UNKNOWN MA HOLDER
     Route: 048
  8. LASIX [Concomitant]
     Active Substance: FUROSEMIDE
     Indication: Product used for unknown indication
     Dosage: 125 MILLIGRAM, BID, LASIX 125MG, 8AM-8PM
     Route: 048
  9. LOKELMA [Concomitant]
     Active Substance: SODIUM ZIRCONIUM CYCLOSILICATE
     Indication: Product used for unknown indication
     Dosage: 10 GRAM, QD, LOKELMA 10 DAYS, 4 PM
     Route: 048
  10. ASPIRIN [Concomitant]
     Active Substance: ASPIRIN
     Indication: Product used for unknown indication
     Dosage: 100 MILLIGRAM, QD, CARDIOASPIRIN 100MG, 12PM
     Route: 048
  11. NITRODERM [Concomitant]
     Active Substance: NITROGLYCERIN
     Indication: Product used for unknown indication
     Dosage: 1 DOSAGE FORM, QD (1 PATCH/DIE)
     Route: 062
  12. DAPAGLIFLOZIN [Concomitant]
     Active Substance: DAPAGLIFLOZIN
     Indication: Product used for unknown indication
     Dosage: 10 MILLIGRAM, QD,FORXIGA 10MG, 1CP ORE 8
     Route: 048
  13. UMECLIDINIUM BROMIDE\VILANTEROL TRIFENATATE [Concomitant]
     Active Substance: UMECLIDINIUM BROMIDE\VILANTEROL TRIFENATATE
     Indication: Product used for unknown indication
     Dosage: 1 DOSAGE FORM, QD, LAVENTAIR ELLIPTA 22/55MG, 1 INHALATION/DAY
     Route: 055

REACTIONS (1)
  - Acute kidney injury [Recovered/Resolved]

NARRATIVE: CASE EVENT DATE: 20231117
